FAERS Safety Report 16008137 (Version 1)
Quarter: 2019Q1

REPORT INFORMATION
  Report Type: Spontaneous
  Country: ES (occurrence: ES)
  Receive Date: 20190224
  Receipt Date: 20190224
  Transmission Date: 20190418
  Serious: Yes (Death, Hospitalization)
  Sender: FDA-Public Use
  Company Number: PHHY2017ES086658

PATIENT
  Age: 62 Year
  Sex: Male

DRUGS (1)
  1. ARGATROBAN. [Suspect]
     Active Substance: ARGATROBAN
     Indication: HEPARIN-INDUCED THROMBOCYTOPENIA
     Dosage: 1 UG/KG/MIN, UNK
     Route: 042

REACTIONS (3)
  - Thrombosis [Fatal]
  - Coagulation time prolonged [Unknown]
  - Multiple organ dysfunction syndrome [Fatal]
